FAERS Safety Report 5839619-X (Version None)
Quarter: 2008Q3

REPORT INFORMATION
  Report Type: 
  Country: None (occurrence: None)
  Receive Date: 20080811
  Receipt Date: 20080804
  Transmission Date: 20090109
  Serious: Yes (Life-Threatening, Hospitalization)
  Sender: FDA-Public Use
  Company Number: US-JNJFOC-20080800480

PATIENT
  Age: 63 Year
  Sex: Male

DRUGS (6)
  1. LEVOFLOXACIN [Suspect]
     Indication: PERITONITIS
  2. FLUCONAZOLE [Concomitant]
     Indication: PERITONITIS
     Route: 065
  3. METRONIDAZOLE HCL [Concomitant]
     Indication: PERITONITIS
     Route: 065
  4. GLIBENCLAMIDE [Concomitant]
     Indication: TYPE 2 DIABETES MELLITUS
     Route: 065
  5. HYDROCORTISONE [Concomitant]
     Indication: ADRENAL INSUFFICIENCY
     Route: 051
  6. INSULIN [Concomitant]
     Indication: HYPERGLYCAEMIA
     Route: 065

REACTIONS (4)
  - CENTRAL PONTINE MYELINOLYSIS [None]
  - HYPOGLYCAEMIA [None]
  - PNEUMONIA ASPIRATION [None]
  - QUADRIPLEGIA [None]
